FAERS Safety Report 8028743-1 (Version None)
Quarter: 2012Q1

REPORT INFORMATION
  Report Type: 
  Country: None (occurrence: None)
  Receive Date: 20120106
  Receipt Date: 20120104
  Transmission Date: 20120608
  Serious: Yes (Hospitalization)
  Sender: FDA-Public Use
  Company Number: AU-MERCK-1201USA00284

PATIENT
  Age: 62 Year
  Sex: Male

DRUGS (2)
  1. PRAMIPEXOLE DIHYDROCHLORIDE [Suspect]
     Route: 048
     Dates: start: 20111115, end: 20111201
  2. SINEMET [Suspect]
     Route: 048
     Dates: start: 20111201

REACTIONS (3)
  - ACCIDENTAL OVERDOSE [None]
  - OEDEMA PERIPHERAL [None]
  - CELLULITIS [None]
